FAERS Safety Report 25150140 (Version 1)
Quarter: 2025Q2

REPORT INFORMATION
  Report Type: Report from Study
  Country: US (occurrence: US)
  Receive Date: 20250402
  Receipt Date: 20250402
  Transmission Date: 20250716
  Serious: No
  Sender: VANDA PHARMACEUTICALS
  Company Number: US-VANDA PHARMACEUTICALS, INC-2024PONUS001125

PATIENT
  Sex: Female
  Weight: 82.993 kg

DRUGS (1)
  1. PONESIMOD [Suspect]
     Active Substance: PONESIMOD
     Indication: Multiple sclerosis
     Dosage: 20 MILLIGRAM, QD
     Route: 048

REACTIONS (3)
  - Pruritus [Unknown]
  - Urinary retention [Unknown]
  - Micturition urgency [Recovering/Resolving]
